FAERS Safety Report 15673582 (Version 4)
Quarter: 2019Q1

REPORT INFORMATION
  Report Type: Spontaneous
  Country: US (occurrence: US)
  Receive Date: 20181129
  Receipt Date: 20190118
  Transmission Date: 20190417
  Serious: Yes (Life-Threatening, Hospitalization)
  Sender: FDA-Public Use
  Company Number: US-PFIZER INC-2018482647

PATIENT
  Age: 40 Year
  Sex: Male

DRUGS (2)
  1. NITROGLYCERIN. [Suspect]
     Active Substance: NITROGLYCERIN
     Indication: ANGINA PECTORIS
     Dosage: 0.4 MG (ONE TABLET), AS NEEDED EVERY 5 MINUTES FOR 3 DOSES
     Route: 060
  2. NITROGLYCERIN. [Suspect]
     Active Substance: NITROGLYCERIN
     Indication: MYOCARDIAL INFARCTION
     Dosage: UNK
     Dates: start: 2014

REACTIONS (7)
  - Product complaint [Recovering/Resolving]
  - Chest pain [Unknown]
  - Paraesthesia [Recovering/Resolving]
  - Burning sensation [Recovering/Resolving]
  - Overdose [Recovering/Resolving]
  - Prescription drug used without a prescription [Recovering/Resolving]
  - Drug effect delayed [Recovering/Resolving]

NARRATIVE: CASE EVENT DATE: 20181118
